FAERS Safety Report 11825429 (Version 48)
Quarter: 2021Q2

REPORT INFORMATION
  Report Type: Other
  Country: CA (occurrence: CA)
  Receive Date: 20151211
  Receipt Date: 20210614
  Transmission Date: 20210716
  Serious: Yes (Other)
  Sender: FDA-Public Use
  Company Number: CA-ROCHE-1417303

PATIENT
  Age: 62 Year
  Sex: Female
  Weight: 102 kg

DRUGS (11)
  1. ACTEMRA [Suspect]
     Active Substance: TOCILIZUMAB
     Route: 042
     Dates: start: 20160310
  2. VALSARTAN. [Concomitant]
     Active Substance: VALSARTAN
     Indication: HYPERTENSION
  3. ACTEMRA [Suspect]
     Active Substance: TOCILIZUMAB
     Indication: RHEUMATOID ARTHRITIS
     Route: 042
     Dates: start: 20140512
  4. ALEVE [Concomitant]
     Active Substance: NAPROXEN SODIUM
  5. PLAQUENIL [Concomitant]
     Active Substance: HYDROXYCHLOROQUINE SULFATE
  6. ACTEMRA [Suspect]
     Active Substance: TOCILIZUMAB
     Route: 042
     Dates: start: 20150204
  7. PREDNISONE. [Suspect]
     Active Substance: PREDNISONE
     Indication: PRODUCT USED FOR UNKNOWN INDICATION
     Route: 065
  8. IMURAN [Concomitant]
     Active Substance: AZATHIOPRINE
  9. AZATHIOPRINE. [Concomitant]
     Active Substance: AZATHIOPRINE
  10. ACTEMRA [Suspect]
     Active Substance: TOCILIZUMAB
     Route: 042
     Dates: start: 20140618
  11. LANSOPRAZOLE. [Concomitant]
     Active Substance: LANSOPRAZOLE

REACTIONS (29)
  - Lower respiratory tract infection [Unknown]
  - Breath sounds abnormal [Unknown]
  - Oxygen saturation decreased [Unknown]
  - Blood pressure increased [Unknown]
  - Candida infection [Unknown]
  - Cough [Recovered/Resolved]
  - Haemoptysis [Unknown]
  - Wound infection [Not Recovered/Not Resolved]
  - Malaise [Not Recovered/Not Resolved]
  - Blood pressure fluctuation [Unknown]
  - Body temperature increased [Unknown]
  - Heart rate increased [Unknown]
  - Dehydration [Unknown]
  - Influenza [Recovering/Resolving]
  - Chest discomfort [Recovered/Resolved]
  - Nasopharyngitis [Not Recovered/Not Resolved]
  - Weight increased [Recovering/Resolving]
  - Oropharyngeal pain [Recovered/Resolved]
  - Tooth disorder [Unknown]
  - Urinary tract infection [Not Recovered/Not Resolved]
  - Cough [Not Recovered/Not Resolved]
  - Heart rate increased [Unknown]
  - Blood pressure diastolic decreased [Unknown]
  - Skin ulcer [Not Recovered/Not Resolved]
  - Infusion related reaction [Unknown]
  - Blood pressure increased [Unknown]
  - Blood pressure systolic increased [Unknown]
  - Weight decreased [Unknown]
  - Lower respiratory tract infection [Recovered/Resolved]

NARRATIVE: CASE EVENT DATE: 2015
